FAERS Safety Report 14328700 (Version 2)
Quarter: 2018Q2

REPORT INFORMATION
  Report Type: Spontaneous
  Country: US (occurrence: US)
  Receive Date: 20171227
  Receipt Date: 20180402
  Transmission Date: 20180711
  Serious: Yes (Hospitalization, Other)
  Sender: FDA-Public Use
  Company Number: US-PFIZER INC-2017039806

PATIENT
  Age: 73 Year
  Sex: Female
  Weight: 84 kg

DRUGS (2)
  1. GENOTROPIN [Suspect]
     Active Substance: SOMATROPIN
     Indication: GROWTH HORMONE DEFICIENCY
  2. GENOTROPIN [Suspect]
     Active Substance: SOMATROPIN
     Indication: BLOOD GROWTH HORMONE
     Dosage: 0.4 MG, DAILY (ONCE A DAY INJECTION )
     Route: 051
     Dates: start: 201608, end: 201707

REACTIONS (4)
  - Amnesia [Recovering/Resolving]
  - Visual impairment [Recovering/Resolving]
  - Cerebrovascular accident [Recovering/Resolving]
  - Drug effect incomplete [Unknown]

NARRATIVE: CASE EVENT DATE: 2017
